FAERS Safety Report 6089986-X (Version None)
Quarter: 2009Q1

REPORT INFORMATION
  Report Type: 
  Country: None (occurrence: None)
  Receive Date: 20090224
  Receipt Date: 20081215
  Transmission Date: 20090719
  Serious: No
  Sender: FDA-Public Use
  Company Number: US-ABBOTT-08P-163-0490080-00

PATIENT
  Weight: 55.842 kg

DRUGS (4)
  1. SIMCOR [Suspect]
     Indication: CAROTID ARTERIOSCLEROSIS
     Dosage: 500/20 MG DAILY
     Dates: start: 20081117, end: 20081123
  2. ESOMEPRAZOLE MAGNESIUM [Concomitant]
     Indication: ABDOMINAL DISCOMFORT
  3. ATENOLOL [Concomitant]
     Indication: DYSPNOEA
  4. LATANOPROST [Concomitant]
     Indication: EYE DISORDER

REACTIONS (2)
  - INSOMNIA [None]
  - PRURITUS [None]
